FAERS Safety Report 8150680-2 (Version None)
Quarter: 2012Q1

REPORT INFORMATION
  Report Type: 
  Country: None (occurrence: None)
  Receive Date: 20120220
  Receipt Date: 20120214
  Transmission Date: 20120608
  Serious: Yes (Death, Life-Threatening)
  Sender: FDA-Public Use
  Company Number: PHHY2011DE29290

PATIENT
  Sex: Female
  Weight: 80 kg

DRUGS (4)
  1. ZOMETA [Suspect]
     Indication: BONE DISORDER
     Dosage: 4 MG, EVERY 4 WEEKS
     Route: 042
     Dates: start: 20091014, end: 20100217
  2. EXEMESTANE [Concomitant]
     Dosage: UNK UKN, UNK
     Dates: start: 20091101
  3. FASLODEX [Concomitant]
     Dosage: 250 MG, DAILY
     Dates: start: 20100121
  4. FASLODEX [Concomitant]
     Dosage: UNK UKN, UNK
     Dates: start: 20090901, end: 20091101

REACTIONS (9)
  - NEOPLASM PROGRESSION [None]
  - CHEST PAIN [None]
  - OSTEOCHONDROSIS [None]
  - PLEURAL EFFUSION [None]
  - METASTASES TO LIVER [None]
  - DYSPNOEA [None]
  - NEOPLASM MALIGNANT [None]
  - METASTASES TO SPINE [None]
  - GENERAL PHYSICAL HEALTH DETERIORATION [None]
